FAERS Safety Report 24802204 (Version 1)
Quarter: 2025Q1

REPORT INFORMATION
  Report Type: Spontaneous
  Country: US (occurrence: US)
  Receive Date: 20250103
  Receipt Date: 20250103
  Transmission Date: 20250409
  Serious: Yes (Other)
  Sender: STRIDES
  Company Number: US-STRIDES ARCOLAB LIMITED-2024SP017335

PATIENT
  Sex: Female

DRUGS (2)
  1. OXYCODONE [Suspect]
     Active Substance: OXYCODONE
     Indication: Musculoskeletal disorder
     Route: 065
  2. BUPRENORPHINE [Suspect]
     Active Substance: BUPRENORPHINE
     Indication: Musculoskeletal disorder
     Route: 065

REACTIONS (2)
  - Oesophageal motility disorder [Recovered/Resolved]
  - Off label use [Unknown]
